FAERS Safety Report 23875688 (Version 1)
Quarter: 2024Q2

REPORT INFORMATION
  Report Type: Spontaneous
  Country: US (occurrence: US)
  Receive Date: 20240520
  Receipt Date: 20240520
  Transmission Date: 20240716
  Serious: Yes (Other)
  Sender: FDA-Public Use
  Company Number: US-CARA THERAPEUTICS, INC.-2024-00266-US

PATIENT
  Sex: Male

DRUGS (1)
  1. KORSUVA [Suspect]
     Active Substance: DIFELIKEFALIN ACETATE
     Indication: Pruritus

REACTIONS (3)
  - Dementia [Unknown]
  - Restlessness [Recovering/Resolving]
  - Restlessness [Recovering/Resolving]
